FAERS Safety Report 6986268-6 (Version None)
Quarter: 2010Q3

REPORT INFORMATION
  Report Type: 
  Country: None (occurrence: None)
  Receive Date: 20100915
  Receipt Date: 20090618
  Transmission Date: 20110219
  Serious: No
  Sender: FDA-Public Use
  Company Number: US-WYE-H09818609

PATIENT
  Sex: Female
  Weight: 64.92 kg

DRUGS (2)
  1. PRISTIQ [Suspect]
     Indication: ANXIETY
     Route: 048
     Dates: start: 20090617, end: 20090618
  2. LORAZEPAM [Concomitant]

REACTIONS (10)
  - DIZZINESS [None]
  - FEELING DRUNK [None]
  - FEELING HOT [None]
  - HEADACHE [None]
  - MANIA [None]
  - NAUSEA [None]
  - PARAESTHESIA [None]
  - SKIN BURNING SENSATION [None]
  - TACHYPHRENIA [None]
  - THINKING ABNORMAL [None]
